FAERS Safety Report 24028580 (Version 1)
Quarter: 2024Q2

REPORT INFORMATION
  Report Type: Spontaneous
  Country: US (occurrence: US)
  Receive Date: 20240628
  Receipt Date: 20240628
  Transmission Date: 20240715
  Serious: No
  Sender: FDA-Public Use
  Company Number: US-SA-SAC20240620000193

PATIENT
  Age: 48 Year
  Sex: Female
  Weight: 104.3 kg

DRUGS (1)
  1. DUPIXENT [Suspect]
     Active Substance: DUPILUMAB
     Indication: Nasal polyps
     Dosage: 300 MG QOW
     Route: 058
     Dates: start: 202311

REACTIONS (2)
  - Psoriasis [Unknown]
  - Eye swelling [Unknown]

NARRATIVE: CASE EVENT DATE: 20231101
